FAERS Safety Report 16629081 (Version 1)
Quarter: 2019Q3

REPORT INFORMATION
  Report Type: Report from Study
  Country: None (occurrence: US)
  Receive Date: 20190725
  Receipt Date: 20190725
  Transmission Date: 20191004
  Serious: Yes (Other)
  Sender: FDA-Public Use
  Company Number: US-ABBVIE-19K-163-2863219-00

PATIENT
  Sex: Female

DRUGS (1)
  1. HUMIRA [Suspect]
     Active Substance: ADALIMUMAB
     Indication: PSORIASIS
     Route: 058

REACTIONS (6)
  - Joint dislocation [Recovering/Resolving]
  - Limb injury [Recovering/Resolving]
  - Road traffic accident [Recovering/Resolving]
  - Osteoarthritis [Unknown]
  - Post-traumatic neck syndrome [Unknown]
  - Abdominal pain upper [Unknown]
